FAERS Safety Report 6547400-1 (Version None)
Quarter: 2010Q1

REPORT INFORMATION
  Report Type: 
  Country: None (occurrence: None)
  Receive Date: 20100119
  Receipt Date: 20100112
  Transmission Date: 20100710
  Serious: Yes (Death)
  Sender: FDA-Public Use
  Company Number: AE 2009-128

PATIENT
  Age: 33 Year
  Sex: Male
  Weight: 124.8299 kg

DRUGS (3)
  1. FAZACLO ODT [Suspect]
     Indication: SCHIZOPHRENIA
     Dosage: 300 MG IN EVENING PO; 400 MG QHS PO
     Route: 048
     Dates: start: 20081002, end: 20090909
  2. DEPAKOTE [Concomitant]
  3. ZYPREXA [Concomitant]

REACTIONS (1)
  - CARDIAC FAILURE CONGESTIVE [None]
